FAERS Safety Report 18570865 (Version 1)
Quarter: 2020Q4

REPORT INFORMATION
  Report Type: Spontaneous
  Country: US (occurrence: US)
  Receive Date: 20201202
  Receipt Date: 20201202
  Transmission Date: 20210114
  Serious: No
  Sender: FDA-Public Use
  Company Number: US-ROCHE-2698705

PATIENT
  Age: 12 Year
  Sex: Female

DRUGS (2)
  1. EVRYSDI [Suspect]
     Active Substance: RISDIPLAM
     Indication: SPINAL MUSCULAR ATROPHY
     Dosage: 0.75 MG/ML
     Route: 065
     Dates: start: 20201015
  2. SPINRAZA [Concomitant]
     Active Substance: NUSINERSEN

REACTIONS (3)
  - Incorrect dose administered [Unknown]
  - Product distribution issue [Unknown]
  - No adverse event [Unknown]

NARRATIVE: CASE EVENT DATE: 20201015
